FAERS Safety Report 17182697 (Version 1)
Quarter: 2019Q4

REPORT INFORMATION
  Report Type: Spontaneous
  Country: US (occurrence: US)
  Receive Date: 20191219
  Receipt Date: 20191219
  Transmission Date: 20200122
  Serious: Yes (Other)
  Sender: FDA-Public Use
  Company Number: US-PORTOLA PHARMACEUTICALS, INC.-2019US000164

PATIENT

DRUGS (1)
  1. ANDEXXA [Suspect]
     Active Substance: ANDEXANET ALFA
     Indication: PROCOAGULANT THERAPY
     Dosage: UNKNOWN
     Route: 042

REACTIONS (3)
  - Coronary artery thrombosis [Unknown]
  - Myocardial infarction [Unknown]
  - Off label use [Unknown]
